FAERS Safety Report 6070395-4 (Version None)
Quarter: 2009Q1

REPORT INFORMATION
  Report Type: 
  Country: None (occurrence: None)
  Receive Date: 20090209
  Receipt Date: 20090205
  Transmission Date: 20090719
  Serious: Yes (Death, Hospitalization)
  Sender: FDA-Public Use
  Company Number: SE-ASTRAZENECA-2009SE00684

PATIENT
  Age: 91 Year
  Sex: Female

DRUGS (10)
  1. ATACAND [Suspect]
     Indication: HYPERTENSION
     Route: 048
  2. WARFARIN SODIUM [Suspect]
     Indication: ATRIAL FIBRILLATION
     Route: 048
  3. SPIRONOLACTONE [Suspect]
     Indication: HYPERTENSION
     Route: 048
  4. ALVEDON [Concomitant]
     Route: 048
  5. MULTI-VITAMINS [Concomitant]
  6. SCHERIPROCT [Concomitant]
     Dosage: 1.3/1 MG
     Route: 054
  7. PROGYNON [Concomitant]
  8. DUROFERON [Concomitant]
     Route: 048
  9. LASIX [Concomitant]
  10. SIFROL [Concomitant]

REACTIONS (4)
  - GASTROINTESTINAL HAEMORRHAGE [None]
  - HYPERKALAEMIA [None]
  - INTERNATIONAL NORMALISED RATIO INCREASED [None]
  - RENAL FAILURE [None]
